FAERS Safety Report 5176559-6 (Version None)
Quarter: 2006Q4

REPORT INFORMATION
  Report Type: 
  Country: None (occurrence: None)
  Receive Date: 20061207
  Receipt Date: 20061121
  Transmission Date: 20070319
  Serious: Yes (Hospitalization)
  Sender: FDA-Public Use
  Company Number: S06-FRA-05028-01

PATIENT
  Age: 43 Year
  Sex: Male
  Weight: 93 kg

DRUGS (19)
  1. SEROPLEX      (ESCITALOPRAM) [Suspect]
     Indication: DEPRESSION
     Dosage: 10 MG QD PO
     Route: 048
     Dates: start: 20060815, end: 20061017
  2. MIRTAZAPINE [Concomitant]
  3. VALPROATE SODIUM [Concomitant]
  4. AREDIA [Concomitant]
  5. ZOCOR [Concomitant]
  6. LORAZEPAM [Concomitant]
  7. NOCTRAN 10 [Concomitant]
  8. CYCLOPHOSPHAMIDE [Concomitant]
  9. MESNA [Concomitant]
  10. BISOPROLOL FUMARATE [Concomitant]
  11. RAMIPRIL [Concomitant]
  12. PLAVIX [Concomitant]
  13. COLCHICINE [Concomitant]
  14. PREDNISONE [Concomitant]
  15. COUMADIN [Concomitant]
  16. ACTONEL [Concomitant]
  17. SULFAMETHOXAZOLE + TRIMETHOPRIM [Concomitant]
  18. SPECIAFOLDINE (FOLIC ACID) [Concomitant]
  19. DIAMOX [Concomitant]

REACTIONS (10)
  - BEHCET'S SYNDROME [None]
  - BLINDNESS [None]
  - CONDITION AGGRAVATED [None]
  - CYTOLYTIC HEPATITIS [None]
  - DILATATION ATRIAL [None]
  - DILATATION VENTRICULAR [None]
  - HAEMOGLOBIN DECREASED [None]
  - INTERNATIONAL NORMALISED RATIO INCREASED [None]
  - NEUTROPHIL COUNT DECREASED [None]
  - PROTHROMBIN TIME SHORTENED [None]
